FAERS Safety Report 17828425 (Version 6)
Quarter: 2020Q3

REPORT INFORMATION
  Report Type: Report from Study
  Country: US (occurrence: US)
  Receive Date: 20200527
  Receipt Date: 20200910
  Transmission Date: 20201102
  Serious: No
  Sender: FDA-Public Use
  Company Number: NVSC2020US145283

PATIENT
  Age: 51 Year
  Sex: Female
  Weight: 54 kg

DRUGS (3)
  1. ALDACTONE [Concomitant]
     Active Substance: SPIRONOLACTONE
     Indication: PRODUCT USED FOR UNKNOWN INDICATION
     Dosage: UNK
     Route: 065
  2. MAYZENT [Suspect]
     Active Substance: SIPONIMOD
     Indication: MULTIPLE SCLEROSIS
     Dosage: 2 MG, QD
     Route: 048
     Dates: start: 20200401, end: 20200601
  3. LASIX [Concomitant]
     Active Substance: FUROSEMIDE
     Indication: PRODUCT USED FOR UNKNOWN INDICATION
     Dosage: UNK
     Route: 065

REACTIONS (14)
  - Urine odour abnormal [Unknown]
  - Chromaturia [Unknown]
  - Weight increased [Recovered/Resolved]
  - Peripheral swelling [Recovering/Resolving]
  - Oedema peripheral [Recovered/Resolved]
  - Oral discomfort [Unknown]
  - Oral pain [Unknown]
  - Parosmia [Unknown]
  - Swelling [Unknown]
  - Ageusia [Unknown]
  - Joint swelling [Unknown]
  - Candida infection [Recovered/Resolved]
  - Tongue disorder [Unknown]
  - Micturition urgency [Unknown]

NARRATIVE: CASE EVENT DATE: 202004
